FAERS Safety Report 5618299-2 (Version None)
Quarter: 2008Q1

REPORT INFORMATION
  Report Type: 
  Country: None (occurrence: None)
  Receive Date: 20080205
  Receipt Date: 20080205
  Transmission Date: 20080703
  Serious: Yes (Other)
  Sender: FDA-Public Use
  Company Number: None

PATIENT
  Age: 37 Year
  Sex: Female
  Weight: 83.4619 kg

DRUGS (1)
  1. MIRENA [Suspect]
     Indication: CONTRACEPTION
     Dates: start: 20060101, end: 20080204

REACTIONS (12)
  - ABDOMINAL PAIN UPPER [None]
  - ANXIETY [None]
  - BACK PAIN [None]
  - BREAST TENDERNESS [None]
  - DEPRESSION [None]
  - DRY EYE [None]
  - DRY MOUTH [None]
  - DRY SKIN [None]
  - FATIGUE [None]
  - HEADACHE [None]
  - LIBIDO DECREASED [None]
  - PAIN IN EXTREMITY [None]
